FAERS Safety Report 4715467-9 (Version None)
Quarter: 2005Q3

REPORT INFORMATION
  Report Type: 
  Country: None (occurrence: None)
  Receive Date: 20050713
  Receipt Date: 20050513
  Transmission Date: 20060218
  Serious: No
  Sender: FDA-Public Use
  Company Number: 05H-163-0300527-00

PATIENT
  Age: 79 Year
  Sex: Female

DRUGS (2)
  1. TPN ELECTROLYTES IN PLASTIC CONTAINER [Suspect]
     Dosage: 999 ML/H, INTRAVENOUS
     Route: 042
     Dates: start: 20050503, end: 20050503
  2. D5.45 WITH 20 MEQ KCL [Concomitant]

REACTIONS (4)
  - DYSPNOEA [None]
  - INCORRECT DRUG ADMINISTRATION RATE [None]
  - MEDICAL DEVICE COMPLICATION [None]
  - MEDICATION ERROR [None]
